FAERS Safety Report 9743235 (Version 2)
Quarter: 2015Q3

REPORT INFORMATION
  Report Type: Spontaneous
  Country: US (occurrence: US)
  Receive Date: 20131210
  Receipt Date: 20150804
  Transmission Date: 20151125
  Serious: No
  Sender: FDA-Public Use
  Company Number: US-GILEAD-2009-0025124

PATIENT
  Age: 48 Year
  Sex: Female

DRUGS (15)
  1. LETAIRIS [Suspect]
     Active Substance: AMBRISENTAN
     Indication: PULMONARY ARTERIAL HYPERTENSION
     Route: 048
     Dates: start: 20090210
  2. PRILOSEC [Concomitant]
     Active Substance: OMEPRAZOLE MAGNESIUM
  3. PREDNISONE. [Concomitant]
     Active Substance: PREDNISONE
  4. PERCOCET [Concomitant]
     Active Substance: ACETAMINOPHEN\OXYCODONE HYDROCHLORIDE
  5. FOLIC ACID. [Concomitant]
     Active Substance: FOLIC ACID
  6. VENTOLIN [Concomitant]
     Active Substance: ALBUTEROL SULFATE
  7. KLOR-CON [Concomitant]
     Active Substance: POTASSIUM CHLORIDE
  8. YAS-28 [Concomitant]
  9. TYLENOL [Concomitant]
     Active Substance: ACETAMINOPHEN
  10. PLAVIX [Concomitant]
     Active Substance: CLOPIDOGREL BISULFATE
  11. ASPIRIN. [Concomitant]
     Active Substance: ASPIRIN
  12. METHOTREXATE [Concomitant]
     Active Substance: METHOTREXATE
  13. LASIX [Concomitant]
     Active Substance: FUROSEMIDE
  14. CEFDINIR. [Concomitant]
     Active Substance: CEFDINIR
  15. IBUPROFEN. [Concomitant]
     Active Substance: IBUPROFEN

REACTIONS (1)
  - Dyspnoea [Unknown]
